FAERS Safety Report 5850629-9 (Version None)
Quarter: 2008Q3

REPORT INFORMATION
  Report Type: 
  Country: None (occurrence: None)
  Receive Date: 20080818
  Receipt Date: 20080811
  Transmission Date: 20090109
  Serious: Yes (Other)
  Sender: FDA-Public Use
  Company Number: CHNY2008NZ03059

PATIENT
  Sex: Female

DRUGS (2)
  1. HABITROL [Suspect]
     Indication: SMOKING CESSATION THERAPY
     Dosage: UNK MG, TRANSDERMAL; 21 MG, TRANSDERMAL
     Route: 062
     Dates: start: 20080723, end: 20080807
  2. HABITROL [Suspect]
     Indication: SMOKING CESSATION THERAPY
     Dosage: UNK MG, TRANSDERMAL; 21 MG, TRANSDERMAL
     Route: 062
     Dates: start: 20060101

REACTIONS (12)
  - APPLICATION SITE ERYTHEMA [None]
  - APPLICATION SITE PRURITUS [None]
  - APPLICATION SITE RASH [None]
  - APPLICATION SITE VESICLES [None]
  - DIZZINESS [None]
  - HYPERTENSION [None]
  - HYPOAESTHESIA FACIAL [None]
  - HYPOAESTHESIA ORAL [None]
  - MALAISE [None]
  - PARAESTHESIA [None]
  - SIMILAR REACTION ON PREVIOUS EXPOSURE TO DRUG [None]
  - VERTIGO [None]
